FAERS Safety Report 7777064-0 (Version None)
Quarter: 2011Q3

REPORT INFORMATION
  Report Type: 
  Country: None (occurrence: None)
  Receive Date: 20110926
  Receipt Date: 20110926
  Transmission Date: 20111222
  Serious: No
  Sender: FDA-Public Use
  Company Number: None

PATIENT
  Age: 32 Year
  Sex: Male
  Weight: 59.874 kg

DRUGS (1)
  1. PROPECIA [Suspect]
     Indication: ALOPECIA
     Dosage: ONE TABLET
     Route: 048
     Dates: start: 20110916, end: 20110922

REACTIONS (5)
  - DEPRESSION [None]
  - PALPITATIONS [None]
  - LIBIDO DECREASED [None]
  - ERECTILE DYSFUNCTION [None]
  - AFFECT LABILITY [None]
